FAERS Safety Report 23750091 (Version 2)
Quarter: 2024Q2

REPORT INFORMATION
  Report Type: Spontaneous
  Country: US (occurrence: US)
  Receive Date: 20240417
  Receipt Date: 20240513
  Transmission Date: 20240715
  Serious: No
  Sender: FDA-Public Use
  Company Number: US-TEVA-VS-3177679

PATIENT

DRUGS (1)
  1. ALPRAZOLAM [Suspect]
     Active Substance: ALPRAZOLAM
     Indication: Product used for unknown indication
     Dosage: BEEN ON THESE FOR 10 YEARS
     Route: 065

REACTIONS (3)
  - Swelling of eyelid [Unknown]
  - Product odour abnormal [Unknown]
  - Swelling face [Unknown]
